FAERS Safety Report 4577756-0 (Version None)
Quarter: 2005Q1

REPORT INFORMATION
  Report Type: 
  Country: None (occurrence: None)
  Receive Date: 20050209
  Receipt Date: 20050126
  Transmission Date: 20050727
  Serious: Yes (Death)
  Sender: FDA-Public Use
  Company Number: 2004AL000569

PATIENT
  Age: 25 Year
  Sex: Male

DRUGS (3)
  1. KADIAN [Suspect]
  2. BENZODIAZEPINE DERIVATIVES [Suspect]
  3. AMPHETAMINE [Suspect]

REACTIONS (9)
  - ACIDOSIS [None]
  - ADVERSE EVENT [None]
  - ATROPHY [None]
  - CARDIO-RESPIRATORY ARREST [None]
  - DEHYDRATION [None]
  - DRUG SCREEN POSITIVE [None]
  - HYPERTHERMIA [None]
  - HYPOTENSION [None]
  - TACHYCARDIA [None]
